FAERS Safety Report 4846993-X (Version None)
Quarter: 2005Q4

REPORT INFORMATION
  Report Type: 
  Country: None (occurrence: None)
  Receive Date: 20051202
  Receipt Date: 20051122
  Transmission Date: 20060501
  Serious: Yes (Other)
  Sender: FDA-Public Use
  Company Number: 143149USA

PATIENT
  Age: 52 Year
  Sex: Female

DRUGS (13)
  1. GLATIRAMER ACETATE [Suspect]
     Indication: MULTIPLE SCLEROSIS
     Dosage: 20 MILLIGRAM
     Route: 058
     Dates: start: 20010418
  2. BACLOFEN [Concomitant]
  3. GABAPENTIN [Concomitant]
  4. LEVOTHYROXINE SODIUM [Concomitant]
  5. FLAVOXATE HCL [Concomitant]
  6. VENLAFAXINE HYDROCHLORIDE [Concomitant]
  7. CONJUGATED ESTROGENS [Concomitant]
  8. DEXAMFETAMINE SULFATE [Concomitant]
  9. RHOVANE [Concomitant]
  10. SIMVASTATIN [Concomitant]
  11. ODAN QUININE [Concomitant]
  12. PROGESTERONE [Concomitant]
  13. TRAZODONE HCL [Concomitant]

REACTIONS (5)
  - ABSCESS [None]
  - CONTUSION [None]
  - ESCHAR [None]
  - INJECTION SITE NECROSIS [None]
  - LIPOATROPHY [None]
